FAERS Safety Report 8033573-0 (Version None)
Quarter: 2012Q1

REPORT INFORMATION
  Report Type: 
  Country: None (occurrence: None)
  Receive Date: 20120110
  Receipt Date: 20120103
  Transmission Date: 20120608
  Serious: Yes (Death)
  Sender: FDA-Public Use
  Company Number: US-PFIZER INC-2009245932

PATIENT
  Age: 32 Year
  Sex: Male

DRUGS (7)
  1. BENADRYL [Suspect]
     Route: 065
  2. SEROQUEL [Suspect]
     Route: 065
  3. ZYPREXA [Suspect]
     Dosage: 10 MG, 1X/DAY
     Route: 065
  4. TRAZODONE HCL [Suspect]
     Route: 065
  5. CITALOPRAM [Suspect]
     Route: 065
  6. LEXAPRO [Suspect]
  7. DILANTIN [Suspect]
     Route: 065

REACTIONS (2)
  - TOXICITY TO VARIOUS AGENTS [None]
  - COMPLETED SUICIDE [None]
